FAERS Safety Report 14830217 (Version 1)
Quarter: 2018Q2

REPORT INFORMATION
  Report Type: Spontaneous
  Country: IL (occurrence: IL)
  Receive Date: 20180430
  Receipt Date: 20180430
  Transmission Date: 20180711
  Serious: Yes (Other)
  Sender: FDA-Public Use
  Company Number: IL-009507513-1804ISR006956

PATIENT
  Age: 51 Year
  Sex: Male

DRUGS (3)
  1. CLONEX (CLONAZEPAM) [Concomitant]
     Active Substance: CLONAZEPAM
  2. METHADONE HYDROCHLORIDE. [Concomitant]
     Active Substance: METHADONE HYDROCHLORIDE
  3. ZEPATIER [Suspect]
     Active Substance: ELBASVIR\GRAZOPREVIR
     Indication: CHRONIC HEPATITIS C
     Dosage: UNK
     Route: 048
     Dates: start: 20180112

REACTIONS (3)
  - Loss of consciousness [Unknown]
  - Skin hyperpigmentation [Not Recovered/Not Resolved]
  - Biliary dilatation [Unknown]

NARRATIVE: CASE EVENT DATE: 2018
